APPROVED DRUG PRODUCT: NYSTAFORM
Active Ingredient: CLIOQUINOL; NYSTATIN
Strength: 10MG/GM;100,000 UNITS/GM
Dosage Form/Route: OINTMENT;TOPICAL
Application: N050235 | Product #001
Applicant: BAYER PHARMACEUTICALS CORP
Approved: Approved Prior to Jan 1, 1982 | RLD: No | RS: No | Type: DISCN